FAERS Safety Report 14756393 (Version 2)
Quarter: 2020Q1

REPORT INFORMATION
  Report Type: Spontaneous
  Country: US (occurrence: US)
  Receive Date: 20180413
  Receipt Date: 20200317
  Transmission Date: 20200409
  Serious: Yes (Hospitalization, Other)
  Sender: FDA-Public Use
  Company Number: US-ASTRAZENECA-2018SE44982

PATIENT
  Age: 63 Year
  Sex: Male
  Weight: 95.7 kg

DRUGS (93)
  1. LOSARTAN. [Concomitant]
     Active Substance: LOSARTAN
  2. XANAX [Concomitant]
     Active Substance: ALPRAZOLAM
  3. FLUOXETINE [Concomitant]
     Active Substance: FLUOXETINE HYDROCHLORIDE
  4. DOCUSATE SODIUM. [Concomitant]
     Active Substance: DOCUSATE SODIUM
  5. APAP/CODEINE [Concomitant]
     Active Substance: ACETAMINOPHEN\CODEINE PHOSPHATE
  6. CEFDINIR. [Concomitant]
     Active Substance: CEFDINIR
  7. PREDNISONE. [Concomitant]
     Active Substance: PREDNISONE
  8. VIGAMOX [Concomitant]
     Active Substance: MOXIFLOXACIN HYDROCHLORIDE
  9. OXYCODONE [Concomitant]
     Active Substance: OXYCODONE
  10. AMOX-CLAV [Concomitant]
     Active Substance: AMOXICILLIN\CLAVULANATE POTASSIUM
  11. PRAVASTATIN. [Concomitant]
     Active Substance: PRAVASTATIN
  12. KOMBIGLYZE XR [Suspect]
     Active Substance: METFORMIN HYDROCHLORIDE\SAXAGLIPTIN HYDROCHLORIDE
     Route: 048
     Dates: start: 2013, end: 2017
  13. ROSUVASTATIN. [Concomitant]
     Active Substance: ROSUVASTATIN
  14. LYRICA [Concomitant]
     Active Substance: PREGABALIN
  15. HYDROCHLOROTHIAZIDE. [Concomitant]
     Active Substance: HYDROCHLOROTHIAZIDE
  16. NIFEDIPINE. [Concomitant]
     Active Substance: NIFEDIPINE
  17. NORCO [Concomitant]
     Active Substance: ACETAMINOPHEN\HYDROCODONE BITARTRATE
  18. LEXAPRO [Concomitant]
     Active Substance: ESCITALOPRAM OXALATE
  19. TRANDATE [Concomitant]
     Active Substance: LABETALOL HYDROCHLORIDE
  20. FLUARIX NOS [Concomitant]
     Active Substance: INFLUENZA VIRUS VACCINE
  21. GLUCAGON. [Concomitant]
     Active Substance: GLUCAGON
  22. CHANTIX [Concomitant]
     Active Substance: VARENICLINE TARTRATE
  23. CEPHALEXIN. [Concomitant]
     Active Substance: CEPHALEXIN
  24. NICOTINE. [Concomitant]
     Active Substance: NICOTINE
  25. ONGLYZA [Suspect]
     Active Substance: SAXAGLIPTIN HYDROCHLORIDE
     Indication: DIABETES MELLITUS
     Route: 048
     Dates: start: 2013, end: 2017
  26. ONGLYZA [Suspect]
     Active Substance: SAXAGLIPTIN HYDROCHLORIDE
     Indication: DIABETES MELLITUS
     Route: 048
     Dates: start: 20110421
  27. OMEPRAZOLE. [Concomitant]
     Active Substance: OMEPRAZOLE
     Route: 048
     Dates: start: 20130521
  28. PLAVIX [Concomitant]
     Active Substance: CLOPIDOGREL BISULFATE
     Route: 048
  29. COREG [Concomitant]
     Active Substance: CARVEDILOL
  30. STATIN [Concomitant]
     Active Substance: UNSPECIFIED INGREDIENT
     Dosage: TWO TIMES A DAY
     Route: 048
  31. METFORMIN [Concomitant]
     Active Substance: METFORMIN HYDROCHLORIDE
  32. TUMS [Concomitant]
     Active Substance: CALCIUM CARBONATE
  33. MELATONIN [Concomitant]
     Active Substance: MELATONIN
  34. SILDENAFIL. [Concomitant]
     Active Substance: SILDENAFIL
  35. TOPIRAMATE. [Concomitant]
     Active Substance: TOPIRAMATE
  36. DUREZOL [Concomitant]
     Active Substance: DIFLUPREDNATE
  37. TADALAFIL. [Concomitant]
     Active Substance: TADALAFIL
  38. CEFAZOLIN [Concomitant]
     Active Substance: CEFAZOLIN
  39. CHLORHEXIDINE [Concomitant]
     Active Substance: CHLORHEXIDINE
  40. FENTANYL. [Concomitant]
     Active Substance: FENTANYL
  41. POTASSIUM CHLORIDE. [Concomitant]
     Active Substance: POTASSIUM CHLORIDE
  42. LOVENOX [Concomitant]
     Active Substance: ENOXAPARIN SODIUM
  43. DOPAMINE [Concomitant]
     Active Substance: DOPAMINE HYDROCHLORIDE
  44. CALAN [Concomitant]
     Active Substance: VERAPAMIL HYDROCHLORIDE
  45. PROPOXYPHENE. [Concomitant]
     Active Substance: PROPOXYPHENE
  46. ONGLYZA [Suspect]
     Active Substance: SAXAGLIPTIN HYDROCHLORIDE
     Indication: DIABETES MELLITUS
     Route: 048
     Dates: start: 20101204
  47. PROTONIX [Concomitant]
     Active Substance: PANTOPRAZOLE SODIUM
     Route: 048
  48. CLOPIDOGREL [Concomitant]
     Active Substance: CLOPIDOGREL BISULFATE
  49. PROZAC [Concomitant]
     Active Substance: FLUOXETINE HYDROCHLORIDE
  50. LEVETIRACETAM. [Concomitant]
     Active Substance: LEVETIRACETAM
  51. PNEUMOVAX 23 [Concomitant]
     Active Substance: PNEUMOCOCCAL VACCINE, POLYVALENT 23
  52. COLCHICINE. [Concomitant]
     Active Substance: COLCHICINE
  53. JANUVIA [Concomitant]
     Active Substance: SITAGLIPTIN PHOSPHATE
  54. PROAIR HFA [Concomitant]
     Active Substance: ALBUTEROL SULFATE
  55. HYDROCORTISONE. [Concomitant]
     Active Substance: HYDROCORTISONE
  56. ATORVASTATIN [Concomitant]
     Active Substance: ATORVASTATIN
  57. ONDANSETRON [Concomitant]
     Active Substance: ONDANSETRON
  58. DEXTROSE. [Concomitant]
     Active Substance: DEXTROSE
  59. GUAIFENESIN. [Concomitant]
     Active Substance: GUAIFENESIN
  60. COMBIVENT [Concomitant]
     Active Substance: ALBUTEROL SULFATE\IPRATROPIUM BROMIDE
  61. SYMBICORT [Concomitant]
     Active Substance: BUDESONIDE\FORMOTEROL FUMARATE DIHYDRATE
  62. ILEVRO [Concomitant]
     Active Substance: NEPAFENAC
  63. PROMETHAZINE [Concomitant]
     Active Substance: PROMETHAZINE HYDROCHLORIDE
  64. GABAPENTIN. [Concomitant]
     Active Substance: GABAPENTIN
  65. TRAMADOL. [Concomitant]
     Active Substance: TRAMADOL
  66. LOPRESSOR [Concomitant]
     Active Substance: METOPROLOL TARTRATE
  67. MAGNESIUM SULFATE. [Concomitant]
     Active Substance: MAGNESIUM SULFATE
  68. VIAGRA [Concomitant]
     Active Substance: SILDENAFIL CITRATE
  69. NOVOFILINA [Concomitant]
  70. NUCYNTA [Concomitant]
     Active Substance: TAPENTADOL HYDROCHLORIDE
  71. INDOMETHACIN. [Concomitant]
     Active Substance: INDOMETHACIN
  72. ENTRESTO [Concomitant]
     Active Substance: SACUBITRIL\VALSARTAN
  73. HEPARIN [Concomitant]
     Active Substance: HEPARIN SODIUM
  74. COENZYME [Concomitant]
     Active Substance: UBIDECARENONE
  75. BENADRYL [Concomitant]
     Active Substance: DIPHENHYDRAMINE HYDROCHLORIDE
  76. TETRACYCLINE [Concomitant]
     Active Substance: TETRACYCLINE
  77. SPIRNOLACTONE [Concomitant]
     Dosage: TWO TIMES A DAY
  78. MELOXICAM. [Concomitant]
     Active Substance: MELOXICAM
  79. METOLAZONE. [Concomitant]
     Active Substance: METOLAZONE
  80. IBUPROFEN. [Concomitant]
     Active Substance: IBUPROFEN
  81. METHOCARBAMOL. [Concomitant]
     Active Substance: METHOCARBAMOL
  82. ASPIRIN. [Concomitant]
     Active Substance: ASPIRIN
  83. LANTUS [Concomitant]
     Active Substance: INSULIN GLARGINE
  84. TYLENOL [Concomitant]
     Active Substance: ACETAMINOPHEN
  85. NITROGLYCERIN. [Concomitant]
     Active Substance: NITROGLYCERIN
  86. PRASUGREL. [Concomitant]
     Active Substance: PRASUGREL
  87. BACLOFEN. [Concomitant]
     Active Substance: BACLOFEN
  88. MORPHINE [Concomitant]
     Active Substance: MORPHINE
  89. SODIUM CHLORIDE. [Concomitant]
     Active Substance: SODIUM CHLORIDE
  90. INTEGRILIN [Concomitant]
     Active Substance: EPTIFIBATIDE
  91. AMOXICILLIN. [Concomitant]
     Active Substance: AMOXICILLIN
  92. NORTRIPTYLINE [Concomitant]
     Active Substance: NORTRIPTYLINE
  93. VITAMIN D [Concomitant]
     Active Substance: VITAMIN D NOS

REACTIONS (6)
  - Myocardial infarction [Unknown]
  - Acute left ventricular failure [Unknown]
  - Cardiac failure [Unknown]
  - Cardiovascular disorder [Unknown]
  - Acute myocardial infarction [Unknown]
  - Cardiac failure congestive [Unknown]

NARRATIVE: CASE EVENT DATE: 2014
